FAERS Safety Report 26141028 (Version 1)
Quarter: 2025Q4

REPORT INFORMATION
  Report Type: Report from Study
  Country: CA (occurrence: CA)
  Receive Date: 20251210
  Receipt Date: 20251210
  Transmission Date: 20260117
  Serious: Yes (Other)
  Sender: ASTELLAS
  Company Number: CA-ASTELLAS-2025-AER-062647

PATIENT
  Age: 46 Year
  Sex: Male

DRUGS (2)
  1. PROGRAF [Suspect]
     Active Substance: TACROLIMUS
     Indication: Liver transplant
     Route: 065
     Dates: start: 202510
  2. PROGRAF [Suspect]
     Active Substance: TACROLIMUS
     Dosage: DOSE REDUCED
     Route: 065

REACTIONS (4)
  - Blood magnesium decreased [Unknown]
  - Dermatitis allergic [Unknown]
  - Fungal skin infection [Unknown]
  - Tremor [Unknown]

NARRATIVE: CASE EVENT DATE: 20251001
